FAERS Safety Report 11940829 (Version 1)
Quarter: 2016Q1

REPORT INFORMATION
  Report Type: Other
  Country: US (occurrence: US)
  Receive Date: 20160122
  Receipt Date: 20160122
  Transmission Date: 20160526
  Serious: Yes (Death)
  Sender: FDA-Public Use
  Company Number: US-PHARMA-MED-USA-POI0580201600005

PATIENT
  Age: 76 Year
  Sex: Female

DRUGS (11)
  1. DILTIAZEM [Suspect]
     Active Substance: DILTIAZEM
     Dates: end: 2014
  2. FLUOXETINE [Suspect]
     Active Substance: FLUOXETINE HYDROCHLORIDE
     Dates: end: 2014
  3. WARFARIN [Suspect]
     Active Substance: WARFARIN
     Dates: end: 2014
  4. PRAVASTATIN [Suspect]
     Active Substance: PRAVASTATIN\PRAVASTATIN SODIUM
     Dates: end: 2014
  5. FUROSEMIDE. [Suspect]
     Active Substance: FUROSEMIDE
     Dates: end: 2014
  6. ETHANOL [Suspect]
     Active Substance: ALCOHOL
     Dates: end: 2014
  7. POTASSIUM CHLORIDE ORAL SOLUTION [Suspect]
     Active Substance: POTASSIUM CHLORIDE
     Dates: end: 2014
  8. LEVOTHYROXINE. [Suspect]
     Active Substance: LEVOTHYROXINE
     Dates: end: 2014
  9. PROPRANOLOL [Suspect]
     Active Substance: PROPRANOLOL\PROPRANOLOL HYDROCHLORIDE
     Dates: end: 2014
  10. TEMAZEPAM. [Suspect]
     Active Substance: TEMAZEPAM
     Dates: end: 2014
  11. PROMETHAZINE [Suspect]
     Active Substance: PROMETHAZINE\PROMETHAZINE HYDROCHLORIDE
     Dates: end: 2014

REACTIONS (1)
  - Completed suicide [Fatal]

NARRATIVE: CASE EVENT DATE: 2014
